FAERS Safety Report 18017148 (Version 1)
Quarter: 2020Q3

REPORT INFORMATION
  Report Type: Spontaneous
  Country: TR (occurrence: TR)
  Receive Date: 20200713
  Receipt Date: 20200713
  Transmission Date: 20201103
  Serious: Yes (Death, Life-Threatening, Hospitalization, Other)
  Sender: FDA-Public Use
  Company Number: TR-GLAXOSMITHKLINE-TR2020GSK118304

PATIENT
  Age: 72 Year
  Sex: Female

DRUGS (1)
  1. DICLOFENAC SODIUM. [Suspect]
     Active Substance: DICLOFENAC SODIUM
     Indication: OSTEOARTHRITIS
     Dosage: UNK

REACTIONS (18)
  - Peritoneal disorder [Unknown]
  - Nausea [Unknown]
  - Abdominal pain [Unknown]
  - Sepsis [Unknown]
  - Vomiting [Unknown]
  - Platelet count decreased [Unknown]
  - Renal function test abnormal [Unknown]
  - Blood lactic acid increased [Unknown]
  - Abdominal distension [Unknown]
  - General physical health deterioration [Unknown]
  - Respiratory arrest [Fatal]
  - Jejunal ulcer perforation [Unknown]
  - Aspartate aminotransferase increased [Unknown]
  - Acute abdomen [Unknown]
  - Alanine aminotransferase increased [Unknown]
  - Abdominal rebound tenderness [Unknown]
  - Pulmonary embolism [Fatal]
  - Intra-abdominal fluid collection [Unknown]
